FAERS Safety Report 4444403-8 (Version None)
Quarter: 2004Q3

REPORT INFORMATION
  Report Type: 
  Country: None (occurrence: None)
  Receive Date: 20040902
  Receipt Date: 20040812
  Transmission Date: 20050211
  Serious: Yes (Death, Life-Threatening, Hospitalization, Other)
  Sender: FDA-Public Use
  Company Number: USA030946621

PATIENT
  Age: 51 Year
  Sex: Male
  Weight: 136 kg

DRUGS (5)
  1. HUMATROPE [Suspect]
     Indication: HYPOPITUITARISM
     Dosage: 1.2 MG
     Dates: start: 20030401, end: 20030801
  2. PREDNISONE [Concomitant]
  3. DOSTINEX [Concomitant]
  4. TESTOSTERONE [Concomitant]
  5. CALCIUM [Concomitant]

REACTIONS (16)
  - CEREBROVASCULAR ACCIDENT [None]
  - ELECTROENCEPHALOGRAM ABNORMAL [None]
  - FOCAL NODULAR HYPERPLASIA [None]
  - HAEMATOCRIT DECREASED [None]
  - HAEMOGLOBIN DECREASED [None]
  - HEPATIC CIRRHOSIS [None]
  - HEPATIC CONGESTION [None]
  - HYPERGLYCAEMIA [None]
  - HYPONATRAEMIA [None]
  - LIVER DISORDER [None]
  - PCO2 DECREASED [None]
  - PITUITARY TUMOUR [None]
  - PLATELET COUNT DECREASED [None]
  - RED BLOOD CELLS URINE POSITIVE [None]
  - RENAL FAILURE [None]
  - STATUS EPILEPTICUS [None]
